FAERS Safety Report 9704135 (Version 1)
Quarter: 2013Q4

REPORT INFORMATION
  Report Type: Spontaneous
  Country: US (occurrence: US)
  Receive Date: 20131122
  Receipt Date: 20131122
  Transmission Date: 20140711
  Serious: No
  Sender: FDA-Public Use
  Company Number: US-GLAXOSMITHKLINE-A1022677A

PATIENT
  Sex: Male

DRUGS (10)
  1. BUPROPION HYDROCHLORIDE [Suspect]
     Indication: ANXIETY
     Dosage: 150MG TWICE PER DAY
     Route: 048
     Dates: start: 201210, end: 201305
  2. RISPERDAL [Concomitant]
  3. EDURANT [Concomitant]
  4. REYATAZ [Concomitant]
  5. NORVIR [Concomitant]
  6. EMTRIVA [Concomitant]
  7. LOVAZA [Concomitant]
  8. LAMOTRIGINE [Concomitant]
  9. DIAZEPAM [Concomitant]
  10. FINASTERIDE [Concomitant]

REACTIONS (5)
  - Dizziness [Not Recovered/Not Resolved]
  - Condition aggravated [Not Recovered/Not Resolved]
  - Acrophobia [Not Recovered/Not Resolved]
  - Anxiety [Not Recovered/Not Resolved]
  - Phobia [Not Recovered/Not Resolved]
